FAERS Safety Report 7530059-4 (Version None)
Quarter: 2011Q2

REPORT INFORMATION
  Report Type: 
  Country: None (occurrence: None)
  Receive Date: 20110607
  Receipt Date: 20110525
  Transmission Date: 20111010
  Serious: Yes (Hospitalization)
  Sender: FDA-Public Use
  Company Number: PHHY2011BR46174

PATIENT
  Sex: Female

DRUGS (1)
  1. EXELON [Suspect]
     Dosage: 9 MG/5 CM2 PATCH
     Route: 062

REACTIONS (4)
  - LIP DISCOLOURATION [None]
  - AGITATION [None]
  - PALLOR [None]
  - AGGRESSION [None]
